FAERS Safety Report 5375118-X (Version None)
Quarter: 2007Q2

REPORT INFORMATION
  Report Type: 
  Country: None (occurrence: None)
  Receive Date: 20070629
  Receipt Date: 20060523
  Transmission Date: 20071010
  Serious: No
  Sender: FDA-Public Use
  Company Number: US-ASTRAZENECA-2006UW10342

PATIENT
  Age: 85 Year
  Sex: Female
  Weight: 65.8 kg

DRUGS (5)
  1. TAMOXIFEN CITRATE [Suspect]
     Indication: BREAST CANCER FEMALE
     Route: 048
     Dates: start: 20010101
  2. QUINIDINE SULFATE [Concomitant]
  3. LASIX [Concomitant]
  4. NERVE PILL [Concomitant]
  5. ACTONEL [Concomitant]

REACTIONS (1)
  - GAIT DISTURBANCE [None]
